FAERS Safety Report 8657521 (Version 4)
Quarter: 2012Q4

REPORT INFORMATION
  Report Type: 
  Country: FR (occurrence: FR)
  Receive Date: 20120710
  Receipt Date: 20121109
  Transmission Date: 20130627
  Serious: Yes (Hospitalization, Other)
  Sender: FDA-Public Use
  Company Number: PHHY2012FR058615

PATIENT
  Sex: Female
  Weight: 55 kg

DRUGS (5)
  1. ZOMETA [Suspect]
     Indication: BREAST CANCER
     Dosage: UNK
     Route: 042
     Dates: end: 201103
  2. TAMOXIFEN [Suspect]
  3. LEVOTHYROXINE [Suspect]
  4. DAFALGAN CODEINE [Concomitant]
  5. PLAQUENIL [Concomitant]

REACTIONS (11)
  - Fibromyalgia [Not Recovered/Not Resolved]
  - Overlap syndrome [Recovering/Resolving]
  - Sjogren^s syndrome [Recovering/Resolving]
  - Influenza [Recovering/Resolving]
  - Pyrexia [Recovering/Resolving]
  - Arthralgia [Recovering/Resolving]
  - Spinal pain [Recovering/Resolving]
  - Musculoskeletal stiffness [Recovering/Resolving]
  - Joint swelling [Recovering/Resolving]
  - Erythema [Recovering/Resolving]
  - Musculoskeletal pain [Recovering/Resolving]
